FAERS Safety Report 7283322-9 (Version None)
Quarter: 2011Q1

REPORT INFORMATION
  Report Type: 
  Country: None (occurrence: None)
  Receive Date: 20110204
  Receipt Date: 20110204
  Transmission Date: 20110831
  Serious: Yes (Hospitalization, Other)
  Sender: FDA-Public Use
  Company Number: None

PATIENT
  Age: 12 Year
  Sex: Male
  Weight: 36.2878 kg

DRUGS (1)
  1. EPIPEN [Suspect]
     Indication: ACCIDENT
     Dates: start: 20110201, end: 20110201

REACTIONS (5)
  - ACCIDENTAL EXPOSURE [None]
  - SKIN DISCOLOURATION [None]
  - INJURY ASSOCIATED WITH DEVICE [None]
  - HYPOAESTHESIA [None]
  - MEDICATION ERROR [None]
